FAERS Safety Report 7273851-6 (Version None)
Quarter: 2011Q1

REPORT INFORMATION
  Report Type: 
  Country: None (occurrence: None)
  Receive Date: 20110203
  Receipt Date: 20110124
  Transmission Date: 20110831
  Serious: Yes (Other)
  Sender: FDA-Public Use
  Company Number: GB-BAXTER-2011BH002557

PATIENT

DRUGS (1)
  1. IMMUNE GLOBULIN INTRAVENOUS (HUMAN) [Suspect]
     Indication: IMMUNODEFICIENCY COMMON VARIABLE
     Route: 042

REACTIONS (1)
  - INFUSION RELATED REACTION [None]
